FAERS Safety Report 7218343-5 (Version None)
Quarter: 2011Q1

REPORT INFORMATION
  Report Type: 
  Country: None (occurrence: None)
  Receive Date: 20110110
  Receipt Date: 20110105
  Transmission Date: 20110831
  Serious: Yes (Other)
  Sender: FDA-Public Use
  Company Number: US-PFIZER INC-2011003188

PATIENT
  Sex: Female
  Weight: 63.492 kg

DRUGS (10)
  1. SYNTHROID [Concomitant]
     Indication: HYPOTHYROIDISM
     Dosage: 75 MG, UNK
     Route: 048
  2. PERCOCET [Concomitant]
     Dosage: 10 MG, UNK
     Route: 048
  3. CELEBREX [Suspect]
     Indication: INTERVERTEBRAL DISC PROTRUSION
  4. TRAMADOL [Concomitant]
     Dosage: 200 MG, UNK
     Route: 048
  5. VALIUM [Concomitant]
     Dosage: 20 MG, 1X/DAY
     Route: 048
  6. FIORICET [Concomitant]
     Dosage: UNK
     Route: 048
  7. CELEBREX [Suspect]
     Indication: COMPLEX REGIONAL PAIN SYNDROME
  8. FLEXERIL [Concomitant]
     Dosage: 10 MG, 3X/DAY
     Route: 048
  9. CELEBREX [Suspect]
     Indication: ARTHRITIS
     Dosage: 200 MG, 1X/DAY
     Route: 048
     Dates: start: 20100101
  10. CYMBALTA [Concomitant]
     Dosage: 60 MG, UNK
     Route: 048

REACTIONS (5)
  - FLUID RETENTION [None]
  - BLOOD PRESSURE FLUCTUATION [None]
  - CHEST PAIN [None]
  - HEART RATE IRREGULAR [None]
  - PALPITATIONS [None]
